FAERS Safety Report 11236522 (Version 1)
Quarter: 2015Q3

REPORT INFORMATION
  Report Type: Spontaneous
  Country: VE (occurrence: VE)
  Receive Date: 20150702
  Receipt Date: 20150702
  Transmission Date: 20151125
  Serious: Yes (Other)
  Sender: FDA-Public Use
  Company Number: VE-AMGEN-VENSP2015064307

PATIENT
  Age: 22 Year
  Sex: Female

DRUGS (1)
  1. ENBREL [Suspect]
     Active Substance: ETANERCEPT
     Indication: JUVENILE IDIOPATHIC ARTHRITIS
     Dosage: UNK
     Route: 065
     Dates: start: 2011, end: 201503

REACTIONS (6)
  - Arteriosclerosis [Unknown]
  - Asthenia [Unknown]
  - Multiple sclerosis [Unknown]
  - Muscular weakness [Unknown]
  - Hemiparesis [Unknown]
  - Paraesthesia [Unknown]

NARRATIVE: CASE EVENT DATE: 201505
